FAERS Safety Report 16958080 (Version 3)
Quarter: 2019Q4

REPORT INFORMATION
  Report Type: Spontaneous
  Country: ES (occurrence: ES)
  Receive Date: 20191024
  Receipt Date: 20191226
  Transmission Date: 20200122
  Serious: Yes (Death, Congenital Anomaly)
  Sender: FDA-Public Use
  Company Number: ES-UCBSA-2019044274

PATIENT

DRUGS (2)
  1. FOLIC ACID. [Concomitant]
     Active Substance: FOLIC ACID
     Route: 064
  2. KEPPRA [Suspect]
     Active Substance: LEVETIRACETAM
     Indication: PRODUCT USED FOR UNKNOWN INDICATION
     Route: 064

REACTIONS (2)
  - Maternal exposure during pregnancy [Unknown]
  - Anencephaly [Fatal]
